FAERS Safety Report 14065634 (Version 2)
Quarter: 2017Q4

REPORT INFORMATION
  Report Type: Spontaneous
  Country: US (occurrence: US)
  Receive Date: 20171009
  Receipt Date: 20171013
  Transmission Date: 20180321
  Serious: No
  Sender: FDA-Public Use
  Company Number: US-BAYER-2017-192958

PATIENT
  Sex: Female

DRUGS (1)
  1. MIRALAX [Suspect]
     Active Substance: POLYETHYLENE GLYCOL 3350
     Indication: GASTROINTESTINAL DISORDER
     Dosage: UNK
     Route: 065

REACTIONS (7)
  - Drug effect delayed [Unknown]
  - Diarrhoea [Unknown]
  - Faeces hard [Unknown]
  - Product physical consistency issue [Unknown]
  - Feeling abnormal [Unknown]
  - Incorrect drug administration duration [Unknown]
  - Faecal volume decreased [Unknown]
